FAERS Safety Report 15147213 (Version 1)
Quarter: 2018Q3

REPORT INFORMATION
  Report Type: Spontaneous
  Country: US (occurrence: US)
  Receive Date: 20180716
  Receipt Date: 20180716
  Transmission Date: 20181010
  Serious: Yes (Other)
  Sender: FDA-Public Use
  Company Number: US-BEH-2018092696

PATIENT
  Age: 26 Year
  Sex: Female
  Weight: 86.62 kg

DRUGS (23)
  1. GLYBURIDE. [Concomitant]
     Active Substance: GLYBURIDE
  2. IRON [Concomitant]
     Active Substance: IRON
  3. VITAMIN D                          /00107901/ [Concomitant]
     Active Substance: ERGOCALCIFEROL
  4. EPINEPHRINE. [Concomitant]
     Active Substance: EPINEPHRINE
  5. HIZENTRA [Suspect]
     Active Substance: HUMAN IMMUNOGLOBULIN G
     Indication: IMMUNODEFICIENCY COMMON VARIABLE
     Dosage: UNK
     Route: 058
  6. METOPROLOL. [Concomitant]
     Active Substance: METOPROLOL
  7. LANSOPRAZOLE. [Concomitant]
     Active Substance: LANSOPRAZOLE
  8. ACETAMINOPHEN. [Concomitant]
     Active Substance: ACETAMINOPHEN
  9. ABILIFY [Concomitant]
     Active Substance: ARIPIPRAZOLE
  10. KEFLEX [Concomitant]
     Active Substance: CEPHALEXIN
  11. SODIUM BICARBONATE. [Concomitant]
     Active Substance: SODIUM BICARBONATE
  12. TUMS                               /00193601/ [Concomitant]
     Active Substance: CALCIUM CARBONATE\MAGNESIUM CARBONATE\MAGNESIUM TRISILICATE
  13. LORAZEPAM. [Concomitant]
     Active Substance: LORAZEPAM
  14. MULTIVITAMINS [Concomitant]
     Active Substance: VITAMINS
  15. HIZENTRA [Suspect]
     Active Substance: HUMAN IMMUNOGLOBULIN G
     Dosage: 10 G, QW
     Route: 058
     Dates: start: 20140902
  16. LIDOCAINE. [Concomitant]
     Active Substance: LIDOCAINE
  17. PREDNISONE. [Concomitant]
     Active Substance: PREDNISONE
  18. CALCIUM CITRATE [Concomitant]
     Active Substance: CALCIUM CITRATE
  19. DIPHENHYDRAMINE. [Concomitant]
     Active Substance: DIPHENHYDRAMINE
  20. AUGMENTIN [Concomitant]
     Active Substance: AMOXICILLIN\CLAVULANATE POTASSIUM
  21. HYDROCODONE BITARTRATE AND ACETAMINOPHEN [Concomitant]
     Active Substance: ACETAMINOPHEN\HYDROCODONE BITARTRATE
  22. LYRICA [Concomitant]
     Active Substance: PREGABALIN
  23. CALCITROL                          /00508501/ [Concomitant]
     Active Substance: CALCIUM CARBONATE\ERGOCALCIFEROL\RETINOL

REACTIONS (1)
  - Neuropathy peripheral [Unknown]

NARRATIVE: CASE EVENT DATE: 201806
